FAERS Safety Report 22050580 (Version 1)
Quarter: 2023Q1

REPORT INFORMATION
  Report Type: Spontaneous
  Country: ES (occurrence: ES)
  Receive Date: 20230301
  Receipt Date: 20230301
  Transmission Date: 20230417
  Serious: Yes (Other)
  Sender: FDA-Public Use
  Company Number: ES-MABO-2022005904

PATIENT

DRUGS (2)
  1. OLANZAPINE [Suspect]
     Active Substance: OLANZAPINE
     Indication: Product used for unknown indication
     Dosage: 5MG, QD (5 DOSES WERE ADMINISTERED TO EACH VOLUNT)
     Route: 048
  2. ARIPIPRAZOLE [Suspect]
     Active Substance: ARIPIPRAZOLE
     Indication: Product used for unknown indication
     Dosage: 10MG, QD (5 DOSES WERE ADMINISTERED TO EACH VOLUN)
     Route: 048

REACTIONS (33)
  - Syncope [Unknown]
  - Presyncope [Unknown]
  - Restlessness [Unknown]
  - Hiccups [Unknown]
  - Photophobia [Unknown]
  - Muscular weakness [Unknown]
  - Epigastric discomfort [Unknown]
  - Arthralgia [Unknown]
  - Anxiety [Unknown]
  - Vomiting [Unknown]
  - Fatigue [Unknown]
  - Gait disturbance [Unknown]
  - Rash [Unknown]
  - Asthenia [Unknown]
  - Tremor [Unknown]
  - Nausea [Unknown]
  - Increased appetite [Unknown]
  - Decreased appetite [Unknown]
  - Dry mouth [Unknown]
  - Restless legs syndrome [Unknown]
  - Palpitations [Unknown]
  - Somnolence [Unknown]
  - Alopecia [Unknown]
  - Pruritus [Unknown]
  - Dizziness [Unknown]
  - Akathisia [Unknown]
  - Hyperhidrosis [Unknown]
  - Salivary hypersecretion [Unknown]
  - Headache [Unknown]
  - Terminal insomnia [Unknown]
  - Constipation [Unknown]
  - Hepatic enzyme increased [Unknown]
  - Insomnia [Unknown]
